FAERS Safety Report 8933847 (Version 2)
Quarter: 2013Q3

REPORT INFORMATION
  Report Type: Spontaneous
  Country: FR (occurrence: FR)
  Receive Date: 20121129
  Receipt Date: 20130911
  Transmission Date: 20140515
  Serious: Yes (Hospitalization, Other)
  Sender: FDA-Public Use
  Company Number: FR-ASTRAZENECA-2012SE89228

PATIENT
  Age: 31625 Day
  Sex: Male

DRUGS (14)
  1. ZESTRIL [Suspect]
     Indication: HYPERTENSION
     Route: 048
     Dates: start: 2006, end: 20120630
  2. ZESTRIL [Suspect]
     Indication: HYPERTENSION
     Route: 048
  3. MORPHINE SULFATE [Suspect]
     Dosage: SKENAN LP, 3.5 DF DAILY
     Route: 048
     Dates: start: 20120629, end: 20120630
  4. MORPHINE SULFATE [Suspect]
     Dosage: SKENAN LP
     Route: 048
  5. MORPHINE SULFATE [Suspect]
     Dosage: ACTISKENAN, 10 MG DAILY
     Route: 048
     Dates: start: 20120629, end: 20120630
  6. MORPHINE SULFATE [Suspect]
     Dosage: ACTISKENAN
     Route: 048
  7. DUROGESIC [Suspect]
     Route: 062
     Dates: start: 20120629, end: 20120630
  8. DUROGESIC [Suspect]
     Route: 062
  9. TEMESTA [Suspect]
     Route: 048
     Dates: start: 2006, end: 20121004
  10. ZOMETA [Concomitant]
     Indication: METASTASES TO BONE
     Route: 042
     Dates: start: 201206, end: 201206
  11. FLUDEX LP [Concomitant]
     Route: 048
  12. ZOLOFT [Concomitant]
     Route: 048
  13. CASODEX [Concomitant]
  14. ENANTONE [Concomitant]

REACTIONS (6)
  - Agitation [Recovered/Resolved]
  - Urinary retention [Recovered/Resolved]
  - Rhabdomyolysis [Unknown]
  - Confusional state [Recovered/Resolved]
  - Disorientation [Recovered/Resolved]
  - Renal failure acute [Recovered/Resolved]
